FAERS Safety Report 6208784-7 (Version None)
Quarter: 2009Q2

REPORT INFORMATION
  Report Type: 
  Country: None (occurrence: None)
  Receive Date: 20090522
  Receipt Date: 20090212
  Transmission Date: 20091009
  Serious: No
  Sender: FDA-Public Use
  Company Number: 8042963

PATIENT
  Age: 44 Year
  Sex: Female
  Weight: 83.6 kg

DRUGS (11)
  1. CIMZIA [Suspect]
     Indication: CROHN'S DISEASE
     Dosage: 400 MG SC
     Route: 058
     Dates: start: 20090204
  2. ALLERGY SHOT [Concomitant]
  3. SINGULAIR [Concomitant]
  4. PREVACID [Concomitant]
  5. PHENERGAN [Concomitant]
  6. CHLORDIAZEPOXIDE + CLIDINIUM [Concomitant]
  7. ADVIL [Concomitant]
  8. PERCOCET [Concomitant]
  9. ALLEGRA [Concomitant]
  10. ADVAIR DISKUS 100/50 [Concomitant]
  11. SALBUTEROL [Concomitant]

REACTIONS (8)
  - ARTHRALGIA [None]
  - COUGH [None]
  - EAR INFECTION [None]
  - EAR PAIN [None]
  - INJECTION SITE PAIN [None]
  - OROPHARYNGEAL PAIN [None]
  - PYREXIA [None]
  - RHINORRHOEA [None]
